FAERS Safety Report 14228466 (Version 2)
Quarter: 2019Q1

REPORT INFORMATION
  Report Type: Spontaneous
  Country: US (occurrence: US)
  Receive Date: 20171127
  Receipt Date: 20190218
  Transmission Date: 20190417
  Serious: No
  Sender: FDA-Public Use
  Company Number: US-009507513-1711USA007701

PATIENT
  Sex: Female
  Weight: 62.14 kg

DRUGS (10)
  1. JANUVIA [Suspect]
     Active Substance: SITAGLIPTIN PHOSPHATE
     Indication: BLOOD GLUCOSE DECREASED
     Dosage: 50 MG, QD
     Route: 048
     Dates: end: 2015
  2. AMLODIPINE BESYLATE. [Concomitant]
     Active Substance: AMLODIPINE BESYLATE
     Dosage: 5 MG, QD (REPORTED AS ^1 TABLET^)
     Route: 048
     Dates: start: 2005
  3. JANUVIA [Suspect]
     Active Substance: SITAGLIPTIN PHOSPHATE
     Dosage: 100 MG, QD, SHE TAKES THIS IN THE MORNING AFTER BREAKFAST.
     Route: 048
     Dates: start: 2015
  4. LEVOTHYROXINE SODIUM. [Concomitant]
     Active Substance: LEVOTHYROXINE SODIUM
     Indication: DIABETES MELLITUS
     Dosage: 75 MILLIGRAM (1 TABLET), QD
     Route: 048
     Dates: start: 2005
  5. GLIPIZIDE. [Concomitant]
     Active Substance: GLIPIZIDE
     Indication: BLOOD GLUCOSE DECREASED
     Dosage: 5 MG (1 TABLET), QD
     Route: 048
     Dates: start: 2005
  6. CALCIUM (UNSPECIFIED) [Concomitant]
     Active Substance: CALCIUM
     Indication: ROUTINE HEALTH MAINTENANCE
     Dosage: 600 MG, QD
     Route: 048
     Dates: start: 2017
  7. VITAMIN D [Concomitant]
     Active Substance: CHOLECALCIFEROL
     Indication: ROUTINE HEALTH MAINTENANCE
     Dosage: 5000 IU, QD
     Route: 048
     Dates: start: 2017
  8. MAGNESIUM (UNSPECIFIED) [Concomitant]
     Active Substance: MAGNESIUM
     Dosage: 400 MG, 2 TABLETS, QD
     Dates: start: 2015
  9. METFORMIN HYDROCHLORIDE. [Suspect]
     Active Substance: METFORMIN HYDROCHLORIDE
     Indication: TYPE 2 DIABETES MELLITUS
     Dosage: 2 DOSAGE FORM, BID (REPORTED AS ^TWO TABLETS TWICE A DAY BY MOUTH^), 1 MORNING AND 1 EVENING
     Route: 048
     Dates: start: 2005
  10. LISINOPRIL. [Concomitant]
     Active Substance: LISINOPRIL
     Dosage: 20 MG (1 TABLET), QD
     Route: 048
     Dates: start: 2005

REACTIONS (1)
  - Drug ineffective [Unknown]
